FAERS Safety Report 9914968 (Version 1)
Quarter: 2014Q1

REPORT INFORMATION
  Report Type: Spontaneous
  Country: CH (occurrence: CH)
  Receive Date: 20140220
  Receipt Date: 20140220
  Transmission Date: 20141002
  Serious: Yes (Death)
  Sender: FDA-Public Use
  Company Number: PHHY2014CH017311

PATIENT
  Age: 94 Year
  Sex: Female

DRUGS (4)
  1. SINTROM [Suspect]
     Dosage: 1 MG, UNK
     Route: 048
     Dates: end: 20131104
  2. CITALOPRAM [Suspect]
     Dosage: 20 MG, QD
     Route: 048
  3. LASILACTON [Concomitant]
     Dosage: 1 DF, QD
     Route: 048
  4. XANAX [Concomitant]
     Dosage: 0.25 MG, QD
     Route: 048

REACTIONS (1)
  - Cerebral haemorrhage [Fatal]
